FAERS Safety Report 21854180 (Version 2)
Quarter: 2023Q1

REPORT INFORMATION
  Report Type: Spontaneous
  Country: US (occurrence: US)
  Receive Date: 20230112
  Receipt Date: 20230323
  Transmission Date: 20230418
  Serious: No
  Sender: FDA-Public Use
  Company Number: US-LUPIN PHARMACEUTICALS INC.-2023-00095

PATIENT

DRUGS (3)
  1. ALBUTEROL SULFATE [Suspect]
     Active Substance: ALBUTEROL SULFATE
     Indication: Asthma
     Dosage: UNK, PRN, PUFFS BY MOUTH EVERY 4 HOURS
     Dates: start: 20221105
  2. ALBUTEROL SULFATE [Suspect]
     Active Substance: ALBUTEROL SULFATE
     Dosage: UNK, PRN, PUFFS BY MOUTH EVERY 4 HOURS
     Dates: start: 20221203
  3. ALBUTEROL SULFATE [Suspect]
     Active Substance: ALBUTEROL SULFATE
     Dosage: UNK, PUFFS BY MOUTH EVERY 4 HOURS
     Dates: start: 20221216

REACTIONS (4)
  - Drug dose omission by device [Unknown]
  - Product communication issue [Unknown]
  - Wrong technique in product usage process [Unknown]
  - No adverse event [Unknown]
